FAERS Safety Report 7954531-8 (Version None)
Quarter: 2011Q4

REPORT INFORMATION
  Report Type: 
  Country: None (occurrence: None)
  Receive Date: 20111114
  Receipt Date: 20111031
  Transmission Date: 20120403
  Serious: Yes (Other)
  Sender: FDA-Public Use
  Company Number: AECAN201100287

PATIENT
  Age: 42 Year
  Sex: Female
  Weight: 95 kg

DRUGS (5)
  1. GAMUNEX [Suspect]
     Indication: CHRONIC INFLAMMATORY DEMYELINATING POLYRADICULONEUROPATHY
     Dosage: 95 GM; TOTAL; IV
     Route: 042
     Dates: start: 20101223, end: 20110826
  2. PREDNISONE TAB [Concomitant]
  3. SOLU-MEDROL [Concomitant]
  4. BENADRYL [Concomitant]
  5. IMURAN [Concomitant]

REACTIONS (7)
  - HYPERSENSITIVITY [None]
  - PALPITATIONS [None]
  - LIP SWELLING [None]
  - ERYTHEMA [None]
  - GASTRIC DISORDER [None]
  - EYELID OEDEMA [None]
  - SWOLLEN TONGUE [None]
